FAERS Safety Report 8065117-1 (Version None)
Quarter: 2012Q1

REPORT INFORMATION
  Report Type: 
  Country: None (occurrence: None)
  Receive Date: 20120117
  Receipt Date: 20111230
  Transmission Date: 20120608
  Serious: Yes (Hospitalization)
  Sender: FDA-Public Use
  Company Number: 2011P1015752

PATIENT
  Age: 66 Year
  Sex: Male
  Weight: 90.7194 kg

DRUGS (12)
  1. PAXIL [Concomitant]
  2. DIGOXIN [Concomitant]
  3. NEURONTIN [Concomitant]
  4. PLAVIX [Concomitant]
  5. ASPIRIN [Concomitant]
  6. AMBIEN [Concomitant]
  7. VALIUM [Concomitant]
  8. NORCO [Concomitant]
  9. CORIG [Concomitant]
  10. FLOMAX [Concomitant]
  11. FENTANYL-100 [Suspect]
     Indication: PAIN
     Dosage: 1 PATCH;Q2D;TDER
     Route: 062
     Dates: start: 20080630, end: 20110101
  12. SOMA [Concomitant]

REACTIONS (5)
  - CARDIAC DISORDER [None]
  - INSOMNIA [None]
  - TINNITUS [None]
  - TOXICITY TO VARIOUS AGENTS [None]
  - FALL [None]
